FAERS Safety Report 26075173 (Version 2)
Quarter: 2025Q4

REPORT INFORMATION
  Report Type: Spontaneous
  Country: JP (occurrence: JP)
  Receive Date: 20251121
  Receipt Date: 20251127
  Transmission Date: 20260118
  Serious: Yes (Death, Other)
  Sender: TAKEDA
  Company Number: JP-TAKEDA-2025TJP011805

PATIENT
  Age: 7 Decade
  Sex: Female

DRUGS (3)
  1. ENTYVIO [Suspect]
     Active Substance: VEDOLIZUMAB
     Indication: Colitis ulcerative
     Dosage: UNK, Q2WEEKS
     Dates: start: 20250801, end: 20250930
  2. ENTYVIO [Suspect]
     Active Substance: VEDOLIZUMAB
  3. ENTYVIO [Suspect]
     Active Substance: VEDOLIZUMAB
     Indication: Colitis ulcerative
     Dosage: UNK

REACTIONS (1)
  - Tongue neoplasm malignant stage unspecified [Fatal]

NARRATIVE: CASE EVENT DATE: 20250930
